FAERS Safety Report 10396000 (Version 1)
Quarter: 2014Q1

REPORT INFORMATION
  Report Type: Spontaneous
  Country: US (occurrence: None)
  Receive Date: 20130724
  Receipt Date: 20130724
  Transmission Date: 20141002
  Serious: No
  Sender: FDA-Public Use
  Company Number: PHEH2012US016348

PATIENT
  Age: 48 Year
  Sex: Female

DRUGS (2)
  1. GILENYA (FTY) CAPSULE, 0.5MG [Suspect]
     Indication: MULTIPLE SCLEROSIS
     Route: 048
     Dates: start: 20120623
  2. CEFUROXIME (NGX) (CEFUROXIME), UNKNOWN [Suspect]

REACTIONS (4)
  - Drug hypersensitivity [None]
  - Urticaria [None]
  - Alopecia [None]
  - Pruritus [None]
